FAERS Safety Report 13082994 (Version 1)
Quarter: 2017Q1

REPORT INFORMATION
  Report Type: Spontaneous
  Country: IT (occurrence: IT)
  Receive Date: 20170104
  Receipt Date: 20170104
  Transmission Date: 20170428
  Serious: Yes (Other)
  Sender: FDA-Public Use
  Company Number: IT-ABBVIE-17P-083-1828540-00

PATIENT
  Age: 37 Year
  Sex: Male
  Weight: 73 kg

DRUGS (1)
  1. MACLADIN [Suspect]
     Active Substance: CLARITHROMYCIN
     Indication: TRACHEITIS
     Route: 048
     Dates: start: 20161212, end: 20161214

REACTIONS (2)
  - Nausea [Recovered/Resolved]
  - Dysentery [Unknown]

NARRATIVE: CASE EVENT DATE: 20161212
